FAERS Safety Report 24726394 (Version 1)
Quarter: 2024Q4

REPORT INFORMATION
  Report Type: Report from Study
  Country: CA (occurrence: CA)
  Receive Date: 20241212
  Receipt Date: 20241212
  Transmission Date: 20250115
  Serious: Yes (Death, Other)
  Sender: ACCORD
  Company Number: None

PATIENT
  Age: 80 Year
  Sex: Male

DRUGS (1)
  1. LEUPROLIDE ACETATE [Suspect]
     Active Substance: LEUPROLIDE ACETATE
     Indication: Prostate cancer
     Dosage: 1 EVERY 4 MONTHS

REACTIONS (9)
  - Diarrhoea [Fatal]
  - Hot flush [Fatal]
  - Septic shock [Fatal]
  - Constipation [Fatal]
  - Incontinence [Fatal]
  - Myalgia [Fatal]
  - Depression [Fatal]
  - Fatigue [Fatal]
  - Gastrointestinal disorder [Fatal]
